FAERS Safety Report 9617337 (Version 1)
Quarter: 2013Q4

REPORT INFORMATION
  Report Type: Spontaneous
  Country: DE (occurrence: DE)
  Receive Date: 20131011
  Receipt Date: 20131011
  Transmission Date: 20140711
  Serious: Yes (Death, Hospitalization)
  Sender: FDA-Public Use
  Company Number: DE-B.I. PHARMACEUTICALS,INC./RIDGEFIELD-2013-BI-32078DE

PATIENT
  Sex: Female

DRUGS (7)
  1. PRADAXA [Suspect]
     Indication: ATRIAL FIBRILLATION
     Dosage: 220 NG
     Dates: start: 201302
  2. L-THYROXIN [Concomitant]
     Dosage: 50 MCG
  3. DYTIDE H [Concomitant]
     Dosage: 0.5 ANZ
  4. BISOPROLOL [Concomitant]
     Dosage: DAILY DOSE: 1-0-0.5 DAILY
  5. GABAPENTIN [Concomitant]
     Dosage: 100 MG
  6. DIGOXIN [Concomitant]
     Dosage: 0.2 MG
  7. TORASEMID [Concomitant]
     Dosage: 5 MG

REACTIONS (9)
  - Haemorrhage [Fatal]
  - Femur fracture [Unknown]
  - Anaemia [Unknown]
  - Pleural effusion [Unknown]
  - Haematemesis [Unknown]
  - Pneumonia aspiration [Unknown]
  - Sepsis [Unknown]
  - Hypertension [Unknown]
  - Cardiac failure [Unknown]
